FAERS Safety Report 9578987 (Version 1)
Quarter: 2013Q4

REPORT INFORMATION
  Report Type: Spontaneous
  Country: US (occurrence: US)
  Receive Date: 20131001
  Receipt Date: 20131001
  Transmission Date: 20140711
  Serious: No
  Sender: FDA-Public Use
  Company Number: US-AMGEN-USASP2013015520

PATIENT
  Sex: Female
  Weight: 50.79 kg

DRUGS (4)
  1. ENBREL [Suspect]
     Indication: RHEUMATOID ARTHRITIS
     Dosage: 25 MG, 2 TIMES/WK
     Route: 058
  2. NAPROSYN                           /00256201/ [Concomitant]
     Dosage: 500 MG, UNK
  3. ARAVA [Concomitant]
     Dosage: 20 MG, UNK
  4. LEVOTHYROXIN [Concomitant]
     Dosage: 88 MUG, UNK

REACTIONS (1)
  - Pain in extremity [Unknown]
